FAERS Safety Report 13280884 (Version 1)
Quarter: 2017Q1

REPORT INFORMATION
  Report Type: Spontaneous
  Country: US (occurrence: US)
  Receive Date: 20170301
  Receipt Date: 20170301
  Transmission Date: 20170428
  Serious: No
  Sender: FDA-Public Use
  Company Number: US-INSYS THERAPEUTICS, INC-INS201606-000312

PATIENT
  Age: 73 Year
  Sex: Male

DRUGS (7)
  1. SUBSYS [Suspect]
     Active Substance: FENTANYL
     Indication: ORAL PAIN
     Dates: start: 20160428
  2. LISINOPRIL. [Concomitant]
     Active Substance: LISINOPRIL
     Indication: HYPERTENSION
  3. MORPHINE SULPHATE ELIXIR [Concomitant]
  4. DURAGESIC [Concomitant]
     Active Substance: FENTANYL
  5. METFORMIN [Concomitant]
     Active Substance: METFORMIN HYDROCHLORIDE
     Indication: DIABETES MELLITUS
  6. SUBSYS [Suspect]
     Active Substance: FENTANYL
     Indication: GLOSSITIS
  7. SILVADENE 1% [Concomitant]
     Indication: MUSCULOSKELETAL DISCOMFORT

REACTIONS (1)
  - Oral discomfort [Unknown]

NARRATIVE: CASE EVENT DATE: 20160623
